FAERS Safety Report 22005952 (Version 1)
Quarter: 2023Q1

REPORT INFORMATION
  Report Type: Spontaneous
  Country: HU (occurrence: US)
  Receive Date: 20230217
  Receipt Date: 20230217
  Transmission Date: 20230418
  Serious: Yes (Disabling)
  Sender: FDA-Public Use
  Company Number: HU-GLAXOSMITHKLINE-US2023GSK025853

PATIENT

DRUGS (1)
  1. LAMOTRIGINE [Suspect]
     Active Substance: LAMOTRIGINE
     Indication: Partial seizures
     Dosage: UNK

REACTIONS (5)
  - Drooling [Unknown]
  - Tremor [Unknown]
  - Muscle twitching [Unknown]
  - Suspected product tampering [Unknown]
  - Product commingling [Unknown]
